FAERS Safety Report 15696737 (Version 1)
Quarter: 2018Q4

REPORT INFORMATION
  Report Type: Spontaneous
  Country: US (occurrence: US)
  Receive Date: 20181206
  Receipt Date: 20181206
  Transmission Date: 20190205
  Serious: No
  Sender: FDA-Public Use
  Company Number: US-PFIZER INC-2018492244

PATIENT
  Age: 48 Year
  Sex: Male
  Weight: 106.58 kg

DRUGS (2)
  1. TESTOSTERONE CIPIONATE [Suspect]
     Active Substance: TESTOSTERONE
     Dosage: UNK
     Route: 042
  2. TESTOSTERONE CIPIONATE [Suspect]
     Active Substance: TESTOSTERONE
     Indication: BLOOD TESTOSTERONE DECREASED
     Dosage: UNK
     Route: 030

REACTIONS (4)
  - Incorrect route of product administration [Unknown]
  - Cough [Recovering/Resolving]
  - Injection site scar [Unknown]
  - Dyspnoea [Recovering/Resolving]
